FAERS Safety Report 21319984 (Version 1)
Quarter: 2022Q3

REPORT INFORMATION
  Report Type: Spontaneous
  Country: US (occurrence: US)
  Receive Date: 20220911
  Receipt Date: 20220911
  Transmission Date: 20221027
  Serious: No
  Sender: FDA-Public Use
  Company Number: US-SA-SAC20220906000050

PATIENT
  Age: 51 Year
  Sex: Female

DRUGS (16)
  1. DUPIXENT [Suspect]
     Active Substance: DUPILUMAB
     Indication: Dermatitis atopic
     Dosage: 300 MG, QOW
     Route: 058
     Dates: start: 202002
  2. CARVEDILOL [Concomitant]
     Active Substance: CARVEDILOL
     Indication: Blood pressure measurement
  3. CLONAZEPAM [Concomitant]
     Active Substance: CLONAZEPAM
  4. OMEPRAZOLE [Concomitant]
     Active Substance: OMEPRAZOLE
  5. BACLOFEN [Concomitant]
     Active Substance: BACLOFEN
  6. PREDNISONE [Concomitant]
     Active Substance: PREDNISONE
  7. DULOXETINE [Concomitant]
     Active Substance: DULOXETINE
  8. MONTELUKAST [Concomitant]
     Active Substance: MONTELUKAST SODIUM
  9. SIMVASTATIN [Concomitant]
     Active Substance: SIMVASTATIN
  10. ASPIRIN [Concomitant]
     Active Substance: ASPIRIN
  11. DICLOFENAC [Concomitant]
     Active Substance: DICLOFENAC
  12. ALBUTEROL\IPRATROPIUM [Concomitant]
     Active Substance: ALBUTEROL\IPRATROPIUM
  13. BUDESONIDE [Concomitant]
     Active Substance: BUDESONIDE
  14. VITAMIN D NOS [Concomitant]
     Active Substance: VITAMIN D NOS
  15. TEA TREE OIL [Concomitant]
     Active Substance: TEA TREE OIL
     Route: 061
  16. MELOXICAM [Concomitant]
     Active Substance: MELOXICAM

REACTIONS (2)
  - Aortic aneurysm [Unknown]
  - Rosacea [Unknown]

NARRATIVE: CASE EVENT DATE: 20220101
